FAERS Safety Report 8292344-0 (Version None)
Quarter: 2012Q2

REPORT INFORMATION
  Report Type: 
  Country: None (occurrence: None)
  Receive Date: 20120417
  Receipt Date: 20110408
  Transmission Date: 20120825
  Serious: No
  Sender: FDA-Public Use
  Company Number: US-BAUSCH-2011BL002385

PATIENT
  Age: 73 Year
  Sex: Male

DRUGS (2)
  1. FLUNISOLIDE [Suspect]
     Indication: OFF LABEL USE
     Route: 045
     Dates: start: 20110127
  2. FLUNISOLIDE [Suspect]
     Indication: DYSPNOEA
     Route: 045
     Dates: start: 20110127

REACTIONS (1)
  - DRY SKIN [None]
